FAERS Safety Report 5386287-X (Version None)
Quarter: 2007Q3

REPORT INFORMATION
  Report Type: 
  Country: None (occurrence: None)
  Receive Date: 20070710
  Receipt Date: 20070710
  Transmission Date: 20080115
  Serious: Yes (Disabling)
  Sender: FDA-Public Use
  Company Number: None

PATIENT
  Sex: Female
  Weight: 81.6475 kg

DRUGS (1)
  1. ALLI [Suspect]
     Indication: WEIGHT CONTROL
     Dosage: 1 TAB BEFORE EACH MEAL PO
     Route: 048
     Dates: start: 20070701, end: 20070705

REACTIONS (2)
  - PERIORBITAL OEDEMA [None]
  - RASH PRURITIC [None]
